FAERS Safety Report 7311157-7 (Version None)
Quarter: 2011Q1

REPORT INFORMATION
  Report Type: 
  Country: None (occurrence: None)
  Receive Date: 20110119
  Receipt Date: 20100913
  Transmission Date: 20110831
  Serious: Yes (Hospitalization)
  Sender: FDA-Public Use
  Company Number: A-NJ2010-39761

PATIENT
  Age: 52 Year
  Sex: Female

DRUGS (3)
  1. TRACLEER [Suspect]
     Indication: PULMONARY ARTERIAL HYPERTENSION
     Dosage: ORAL
     Route: 048
     Dates: start: 20090710
  2. CALCIUM CHANNEL BLOCKERS [Concomitant]
  3. COUMADIN [Concomitant]

REACTIONS (1)
  - LOSS OF CONSCIOUSNESS [None]
